FAERS Safety Report 7718242-6 (Version None)
Quarter: 2011Q3

REPORT INFORMATION
  Report Type: 
  Country: None (occurrence: None)
  Receive Date: 20110830
  Receipt Date: 20110822
  Transmission Date: 20111222
  Serious: Yes (Disabling, Other)
  Sender: FDA-Public Use
  Company Number: PHFR2011IE01445

PATIENT
  Sex: Female

DRUGS (1)
  1. CLOZAPINE [Suspect]
     Indication: SCHIZOPHRENIA
     Route: 048
     Dates: start: 20110209, end: 20110221

REACTIONS (10)
  - VOMITING [None]
  - INFLUENZA LIKE ILLNESS [None]
  - ALANINE AMINOTRANSFERASE INCREASED [None]
  - BODY TEMPERATURE FLUCTUATION [None]
  - BLOOD CREATINE PHOSPHOKINASE INCREASED [None]
  - C-REACTIVE PROTEIN INCREASED [None]
  - LIVER FUNCTION TEST ABNORMAL [None]
  - GAMMA-GLUTAMYLTRANSFERASE INCREASED [None]
  - LYMPHOCYTE COUNT DECREASED [None]
  - NAUSEA [None]
